FAERS Safety Report 18632932 (Version 1)
Quarter: 2020Q4

REPORT INFORMATION
  Report Type: Spontaneous
  Country: CO (occurrence: CO)
  Receive Date: 20201218
  Receipt Date: 20201218
  Transmission Date: 20210114
  Serious: Yes (Other)
  Sender: FDA-Public Use
  Company Number: CO-BAXTER-2020BAX025522

PATIENT
  Age: 46 Year
  Sex: Male

DRUGS (2)
  1. CLORURO DE SODIO 0.9% USP [Suspect]
     Active Substance: SODIUM CHLORIDE
     Indication: IRRIGATION THERAPY
     Route: 042
     Dates: start: 20200917, end: 20200917
  2. BEVACIZUMAB. [Concomitant]
     Active Substance: BEVACIZUMAB
     Indication: PRODUCT USED FOR UNKNOWN INDICATION
     Route: 065

REACTIONS (3)
  - Bacteraemia [Recovered/Resolved]
  - Pantoea agglomerans infection [Recovered/Resolved]
  - Abdominal pain [Unknown]

NARRATIVE: CASE EVENT DATE: 20200917
